FAERS Safety Report 9483840 (Version 2)
Quarter: 2013Q3

REPORT INFORMATION
  Report Type: Report from Study
  Country: US (occurrence: US)
  Receive Date: 20130828
  Receipt Date: 20130828
  Transmission Date: 20140515
  Serious: Yes (Death, Hospitalization)
  Sender: FDA-Public Use
  Company Number: PHEH2013US016475

PATIENT
  Sex: Female
  Weight: 57.61 kg

DRUGS (15)
  1. AFINITOR [Suspect]
     Indication: BREAST CANCER
     Dosage: 5 MG, QD
     Route: 048
     Dates: start: 201303, end: 201306
  2. AFINITOR [Suspect]
     Dosage: UNK
  3. AROMASIN [Concomitant]
  4. METOPROLOL [Concomitant]
     Dosage: 1 MG, BID
     Route: 048
  5. HYDROCHLOROTHIAZIDE [Concomitant]
     Dosage: 25 MG, DAILY
     Route: 048
  6. METFORMIN [Concomitant]
     Dosage: 1000 MG, BID
     Route: 048
  7. LORATADINE [Concomitant]
     Dosage: 10 MG, DAILY
     Route: 048
  8. HYDROCORTISONE [Concomitant]
  9. LEVOTHYROXINE [Concomitant]
     Dosage: 100 UG, QD
     Route: 048
  10. CLONIDINE [Concomitant]
     Dosage: 0.1 MG, BID
     Route: 048
  11. PRESERVISION [Concomitant]
     Dosage: 1 DF
     Route: 048
  12. IMODIUM [Concomitant]
  13. PYRIDIUM [Concomitant]
     Dosage: 100 MG
     Route: 048
     Dates: start: 20130625
  14. RANITIDINE [Concomitant]
     Dosage: 150 MG, BID
     Route: 048
     Dates: start: 20130625
  15. ZOFRON [Concomitant]
     Dosage: 4 MG, UNK
     Route: 048
     Dates: start: 20130625

REACTIONS (28)
  - Respiratory failure [Fatal]
  - Ascites [Unknown]
  - Abdominal distension [Unknown]
  - Malaise [Unknown]
  - Hypercalcaemia [Unknown]
  - Fatigue [Unknown]
  - Dehydration [Recovering/Resolving]
  - Renal failure [Unknown]
  - Asthenia [Unknown]
  - Nausea [Unknown]
  - Vomiting [Unknown]
  - Hypokalaemia [Unknown]
  - Vulvovaginal burning sensation [Unknown]
  - Back pain [Unknown]
  - Chills [Unknown]
  - Urinary tract infection fungal [Unknown]
  - Suprapubic pain [Unknown]
  - Muscle spasms [Unknown]
  - Dysuria [Unknown]
  - Flank pain [Unknown]
  - Abdominal pain [Unknown]
  - Pelvic pain [Unknown]
  - Abdominal discomfort [Unknown]
  - Vulvovaginal pruritus [Unknown]
  - Vulvovaginal mycotic infection [Unknown]
  - Vulvovaginal candidiasis [Unknown]
  - Haemoglobin decreased [Unknown]
  - Drug ineffective [Unknown]
